FAERS Safety Report 5901897-6 (Version None)
Quarter: 2008Q3

REPORT INFORMATION
  Report Type: 
  Country: None (occurrence: None)
  Receive Date: 20080925
  Receipt Date: 20080909
  Transmission Date: 20090109
  Serious: Yes (Hospitalization)
  Sender: FDA-Public Use
  Company Number: 2008BM000110

PATIENT
  Age: 20 Year
  Sex: Female
  Weight: 83.2804 kg

DRUGS (14)
  1. 6R-BH4 (SAPROPTERIN DIHYDROCHLORIDE) TABLET, 100MG [Suspect]
     Indication: SICKLE CELL ANAEMIA
     Dosage: SEE IMAGE
     Route: 048
     Dates: start: 20080311, end: 20080409
  2. 6R-BH4 (SAPROPTERIN DIHYDROCHLORIDE) TABLET, 100MG [Suspect]
     Indication: SICKLE CELL ANAEMIA
     Dosage: SEE IMAGE
     Route: 048
     Dates: start: 20080410, end: 20080511
  3. 6R-BH4 (SAPROPTERIN DIHYDROCHLORIDE) TABLET, 100MG [Suspect]
     Indication: SICKLE CELL ANAEMIA
     Dosage: SEE IMAGE
     Route: 048
     Dates: start: 20080512, end: 20080521
  4. 6R-BH4 (SAPROPTERIN DIHYDROCHLORIDE) TABLET, 100MG [Suspect]
     Indication: SICKLE CELL ANAEMIA
     Dosage: SEE IMAGE
     Route: 048
     Dates: start: 20080529, end: 20080604
  5. 6R-BH4 (SAPROPTERIN DIHYDROCHLORIDE) TABLET, 100MG [Suspect]
     Indication: SICKLE CELL ANAEMIA
     Dosage: SEE IMAGE
     Route: 048
     Dates: start: 20080605
  6. 6R-BH4 (SAPROPTERIN DIHYDROCHLORIDE) TABLET, 100MG [Suspect]
  7. LEVAQUIN [Concomitant]
  8. DARVOCET /00220901/ [Concomitant]
  9. AMOXICILLIN [Concomitant]
  10. FOLIC ACID [Concomitant]
  11. MOTRIN [Concomitant]
  12. KETOROLAC TROMETHAMINE [Concomitant]
  13. MS CONTIN [Concomitant]
  14. OXYCONTIN [Concomitant]

REACTIONS (7)
  - DIZZINESS [None]
  - DYSPNOEA [None]
  - EAR PAIN [None]
  - OROPHARYNGEAL PAIN [None]
  - OTITIS MEDIA [None]
  - TACHYCARDIA [None]
  - VERTIGO [None]
